FAERS Safety Report 7571430-4 (Version None)
Quarter: 2011Q2

REPORT INFORMATION
  Report Type: 
  Country: None (occurrence: None)
  Receive Date: 20110624
  Receipt Date: 20110620
  Transmission Date: 20111010
  Serious: Yes (Death)
  Sender: FDA-Public Use
  Company Number: PHHY2011JP54730

PATIENT
  Age: 72 Year
  Sex: Female

DRUGS (2)
  1. TACROLIMUS [Suspect]
     Dosage: 0.5 MG/DAY
  2. TACROLIMUS [Suspect]
     Indication: RHEUMATOID ARTHRITIS
     Dosage: 1.5 MG/DAY

REACTIONS (3)
  - DYSPNOEA EXERTIONAL [None]
  - DIFFUSE ALVEOLAR DAMAGE [None]
  - PYREXIA [None]
